FAERS Safety Report 5029002-1 (Version None)
Quarter: 2006Q2

REPORT INFORMATION
  Report Type: 
  Country: None (occurrence: None)
  Receive Date: 20060613
  Receipt Date: 20060608
  Transmission Date: 20061013
  Serious: Yes (Other)
  Sender: FDA-Public Use
  Company Number: S06-USA-01438-01

PATIENT
  Age: 58 Year
  Sex: Female

DRUGS (5)
  1. THYROID TAB [Suspect]
     Indication: HYPOTHYROIDISM
     Dosage: 75 MG QD PO
     Route: 048
     Dates: start: 20040101, end: 20060415
  2. THYROID TAB [Suspect]
     Indication: HYPOTHYROIDISM
     Dosage: 60 MG QD PO
     Route: 048
     Dates: start: 20020101, end: 20040101
  3. VITAMINS [Concomitant]
  4. CHINESE MEDICINES (NOS) [Concomitant]
  5. LEVOXYL [Concomitant]

REACTIONS (5)
  - DIZZINESS [None]
  - HEADACHE [None]
  - HEART RATE IRREGULAR [None]
  - REFUSAL OF TREATMENT BY PATIENT [None]
  - THYROXINE FREE DECREASED [None]
